FAERS Safety Report 12768205 (Version 1)
Quarter: 2016Q3

REPORT INFORMATION
  Report Type: Spontaneous
  Country: BG (occurrence: BG)
  Receive Date: 20160921
  Receipt Date: 20160921
  Transmission Date: 20161109
  Serious: Yes (Life-Threatening, Hospitalization)
  Sender: FDA-Public Use
  Company Number: BG-TEVA-691633ISR

PATIENT
  Age: 49 Year
  Sex: Female

DRUGS (2)
  1. CARBOPLATIN ACTAVIS [Suspect]
     Active Substance: CARBOPLATIN
     Indication: OVARIAN CANCER METASTATIC
     Route: 042
     Dates: start: 20160818, end: 20160818
  2. PACLITAXEL. [Concomitant]
     Active Substance: PACLITAXEL

REACTIONS (5)
  - Cold sweat [Recovered/Resolved]
  - Circulatory collapse [Recovering/Resolving]
  - Seizure [Recovering/Resolving]
  - Asthenia [Recovered/Resolved]
  - Palpitations [Recovering/Resolving]

NARRATIVE: CASE EVENT DATE: 20160818
